FAERS Safety Report 6873369-6 (Version None)
Quarter: 2010Q3

REPORT INFORMATION
  Report Type: 
  Country: None (occurrence: None)
  Receive Date: 20100723
  Receipt Date: 20090107
  Transmission Date: 20110219
  Serious: No
  Sender: FDA-Public Use
  Company Number: US-PFIZER INC-2009153274

PATIENT
  Sex: Male
  Weight: 92.971 kg

DRUGS (4)
  1. CHANTIX [Suspect]
     Indication: SMOKING CESSATION THERAPY
     Dosage: 0.5 MG, 2X/DAY
     Route: 048
     Dates: start: 20081201, end: 20081201
  2. TRICOR [Concomitant]
     Indication: BLOOD TRIGLYCERIDES INCREASED
     Dosage: UNK
     Route: 048
  3. DRUG, UNSPECIFIED [Concomitant]
     Indication: DYSPEPSIA
     Dosage: UNK
     Route: 048
  4. CENTRUM MULTIVITAMIN [Concomitant]
     Dosage: UNK
     Route: 048

REACTIONS (1)
  - NAUSEA [None]
